FAERS Safety Report 14617798 (Version 2)
Quarter: 2018Q2

REPORT INFORMATION
  Report Type: Report from Study
  Country: JP (occurrence: JP)
  Receive Date: 20180309
  Receipt Date: 20180419
  Transmission Date: 20180711
  Serious: Yes (Other)
  Sender: FDA-Public Use
  Company Number: JP-AMGEN-JPNSP2017158519

PATIENT
  Age: 17 Year
  Sex: Male
  Weight: 56 kg

DRUGS (5)
  1. ZETIA [Concomitant]
     Active Substance: EZETIMIBE
     Dosage: 10 MG, QD (10 MG X 1 TABLET)
     Route: 048
     Dates: start: 20170730
  2. CRESTOR [Suspect]
     Active Substance: ROSUVASTATIN CALCIUM
     Indication: PRODUCT USED FOR UNKNOWN INDICATION
     Dosage: 20 MG, QD
     Route: 048
     Dates: start: 20170825
  3. CHOLEBINE [Concomitant]
     Active Substance: COLESTILAN CHLORIDE
     Dosage: 3 G, UNK
  4. EVOLOCUMAB [Suspect]
     Active Substance: EVOLOCUMAB
     Indication: TYPE IIA HYPERLIPIDAEMIA
     Dosage: 420 MG, Q2WK
     Route: 058
     Dates: start: 20171017
  5. PROBUCOL [Concomitant]
     Active Substance: PROBUCOL
     Dosage: 1000 MG, QD
     Dates: start: 20170922

REACTIONS (2)
  - Blood creatine phosphokinase increased [Recovered/Resolved]
  - Takayasu^s arteritis [Unknown]

NARRATIVE: CASE EVENT DATE: 20171017
